FAERS Safety Report 20499109 (Version 1)
Quarter: 2022Q1

REPORT INFORMATION
  Report Type: Spontaneous
  Country: AT (occurrence: AT)
  Receive Date: 20220222
  Receipt Date: 20220222
  Transmission Date: 20220423
  Serious: Yes (Other)
  Sender: FDA-Public Use
  Company Number: AT-LEO Pharma-341143

PATIENT
  Sex: Female

DRUGS (2)
  1. PROTOPIC [Suspect]
     Active Substance: TACROLIMUS
     Indication: Lichen sclerosus
     Route: 065
  2. CLOBETASOL PROPIONATE [Suspect]
     Active Substance: CLOBETASOL PROPIONATE
     Indication: Lichen sclerosus
     Route: 065

REACTIONS (3)
  - Product use in unapproved indication [Unknown]
  - Swelling face [Unknown]
  - Steroid withdrawal syndrome [Unknown]
